FAERS Safety Report 9022002 (Version 3)
Quarter: 2013Q1

REPORT INFORMATION
  Report Type: Spontaneous
  Country: JP (occurrence: JP)
  Receive Date: 20130110
  Receipt Date: 20130219
  Transmission Date: 20140127
  Serious: Yes (Death, Life-Threatening, Hospitalization)
  Sender: FDA-Public Use
  Company Number: JP-PFIZER INC-2013009472

PATIENT
  Age: 49 Year
  Sex: Male
  Weight: 97.62 kg

DRUGS (2)
  1. INLYTA [Suspect]
     Indication: RENAL CELL CARCINOMA
     Dosage: 5 MG, 2X/DAY
     Route: 048
     Dates: start: 20120906, end: 20121114
  2. INLYTA [Suspect]
     Indication: METASTASES TO LYMPH NODES
     Dosage: 7 MG, 2X/DAY
     Route: 048
     Dates: start: 20121115, end: 20121226

REACTIONS (4)
  - Disease progression [Fatal]
  - Renal cell carcinoma [Fatal]
  - Renal impairment [Not Recovered/Not Resolved]
  - Hepatic function abnormal [Recovered/Resolved]
